FAERS Safety Report 19510871 (Version 1)
Quarter: 2021Q3

REPORT INFORMATION
  Report Type: Spontaneous
  Country: US (occurrence: US)
  Receive Date: 20210709
  Receipt Date: 20210709
  Transmission Date: 20211014
  Serious: Yes (Hospitalization)
  Sender: FDA-Public Use
  Company Number: None

PATIENT
  Age: 67 Year
  Sex: Male
  Weight: 84.8 kg

DRUGS (3)
  1. CABAZITAXEL [Suspect]
     Active Substance: CABAZITAXEL
     Dates: end: 20210616
  2. ABIRATERONE ACETATE. [Suspect]
     Active Substance: ABIRATERONE ACETATE
     Dates: end: 20210707
  3. PREDNISONE. [Suspect]
     Active Substance: PREDNISONE
     Dates: end: 20210706

REACTIONS (3)
  - Hydronephrosis [None]
  - Urinary tract infection [None]
  - Ureteral disorder [None]

NARRATIVE: CASE EVENT DATE: 20210707
